FAERS Safety Report 5465803-3 (Version None)
Quarter: 2007Q3

REPORT INFORMATION
  Report Type: 
  Country: None (occurrence: None)
  Receive Date: 20070919
  Receipt Date: 20070919
  Transmission Date: 20080115
  Serious: Yes (Other)
  Sender: FDA-Public Use
  Company Number: None

PATIENT
  Age: 54 Year
  Sex: Female
  Weight: 95.2554 kg

DRUGS (3)
  1. LEXAPRO [Suspect]
     Indication: DEPRESSION
     Dosage: 20 MG ONCE A DAY PO
     Route: 048
  2. NEXIUM [Concomitant]
  3. BUPROPIAN [Concomitant]

REACTIONS (12)
  - CHILLS [None]
  - CONDITION AGGRAVATED [None]
  - FATIGUE [None]
  - MUSCLE CONTRACTIONS INVOLUNTARY [None]
  - MUSCLE SPASMS [None]
  - PARAESTHESIA [None]
  - RESTLESS LEGS SYNDROME [None]
  - SOMNOLENCE [None]
  - SPINAL DISORDER [None]
  - TENDERNESS [None]
  - TOOTH DISORDER [None]
  - TREMOR [None]
